FAERS Safety Report 15742307 (Version 1)
Quarter: 2018Q4

REPORT INFORMATION
  Report Type: Spontaneous
  Country: TR (occurrence: TR)
  Receive Date: 20181219
  Receipt Date: 20181219
  Transmission Date: 20190205
  Serious: Yes (Other)
  Sender: FDA-Public Use
  Company Number: TR-ENDO PHARMACEUTICALS INC-2018-043493

PATIENT
  Age: 14 Year
  Sex: Male

DRUGS (1)
  1. SULFASALAZINE. [Suspect]
     Active Substance: SULFASALAZINE
     Indication: JUVENILE PSORIATIC ARTHRITIS
     Dosage: UNK UNKNOWN, UNKNOWN
     Route: 065

REACTIONS (1)
  - Haemophagocytic lymphohistiocytosis [Recovered/Resolved]
